FAERS Safety Report 14934529 (Version 2)
Quarter: 2018Q2

REPORT INFORMATION
  Report Type: Spontaneous
  Country: US (occurrence: US)
  Receive Date: 20180524
  Receipt Date: 20180622
  Transmission Date: 20180711
  Serious: Yes (Hospitalization)
  Sender: FDA-Public Use
  Company Number: US-ASTRAZENECA-2018SE65755

PATIENT
  Age: 69 Year
  Sex: Female
  Weight: 45.8 kg

DRUGS (8)
  1. PULMICORT FLEXHALER [Suspect]
     Active Substance: BUDESONIDE
     Indication: EMPHYSEMA
     Dosage: 90 MCG ONE PUFFS TWICE A DAY
     Route: 055
     Dates: start: 20180503
  2. DILTIAZEM CD [Concomitant]
     Active Substance: DILTIAZEM
     Indication: BLOOD PRESSURE ABNORMAL
     Route: 048
     Dates: start: 20180516
  3. PULMICORT FLEXHALER [Suspect]
     Active Substance: BUDESONIDE
     Indication: CHRONIC OBSTRUCTIVE PULMONARY DISEASE
     Dosage: 90 MCG ONE PUFFS TWICE A DAY
     Route: 055
     Dates: start: 20180503
  4. SPIRIVA RESPIMAT [Concomitant]
     Active Substance: TIOTROPIUM BROMIDE
     Indication: EMPHYSEMA
     Dosage: 2.5 MCG 1 PUFF TWICE A DAY
     Dates: start: 201805
  5. CRESTOR [Suspect]
     Active Substance: ROSUVASTATIN CALCIUM
     Indication: BLOOD CHOLESTEROL ABNORMAL
     Route: 048
  6. PULMICORT FLEXHALER [Suspect]
     Active Substance: BUDESONIDE
     Indication: TOTAL LUNG CAPACITY DECREASED
     Dosage: 90 MCG ONE PUFFS TWICE A DAY
     Route: 055
     Dates: start: 20180503
  7. SPIRIVA RESPIMAT [Concomitant]
     Active Substance: TIOTROPIUM BROMIDE
     Indication: CHRONIC OBSTRUCTIVE PULMONARY DISEASE
     Dosage: 2.5 MCG 1 PUFF TWICE A DAY
     Dates: start: 201805
  8. PULMICORT FLEXHALER [Suspect]
     Active Substance: BUDESONIDE
     Indication: DYSPNOEA
     Dosage: 90 MCG ONE PUFFS TWICE A DAY
     Route: 055
     Dates: start: 20180503

REACTIONS (20)
  - Total lung capacity decreased [Not Recovered/Not Resolved]
  - Lung disorder [Not Recovered/Not Resolved]
  - Bone density abnormal [Unknown]
  - Off label use [Not Recovered/Not Resolved]
  - Wrong technique in product usage process [Not Recovered/Not Resolved]
  - Osteoporosis [Not Recovered/Not Resolved]
  - Product use in unapproved indication [Not Recovered/Not Resolved]
  - Emphysema [Not Recovered/Not Resolved]
  - Cardiac disorder [Not Recovered/Not Resolved]
  - Intentional product misuse [Not Recovered/Not Resolved]
  - Chronic obstructive pulmonary disease [Not Recovered/Not Resolved]
  - Anxiety [Not Recovered/Not Resolved]
  - Heart rate increased [Not Recovered/Not Resolved]
  - Fractured sacrum [Not Recovered/Not Resolved]
  - Spinal fracture [Not Recovered/Not Resolved]
  - Atrial fibrillation [Not Recovered/Not Resolved]
  - Supraventricular tachycardia [Not Recovered/Not Resolved]
  - Device malfunction [Unknown]
  - Loss of personal independence in daily activities [Not Recovered/Not Resolved]
  - Drug prescribing error [Unknown]

NARRATIVE: CASE EVENT DATE: 2012
